FAERS Safety Report 20034850 (Version 1)
Quarter: 2021Q4

REPORT INFORMATION
  Report Type: Spontaneous
  Country: US (occurrence: US)
  Receive Date: 20211104
  Receipt Date: 20211104
  Transmission Date: 20220303
  Serious: No
  Sender: FDA-Public Use
  Company Number: US-PFIZER INC-2021510047

PATIENT
  Age: 72 Year
  Sex: Female

DRUGS (1)
  1. IBRANCE [Suspect]
     Active Substance: PALBOCICLIB
     Dosage: 125 MG
     Dates: start: 20200325

REACTIONS (5)
  - Vitamin D decreased [Unknown]
  - Vitamin B complex deficiency [Unknown]
  - Nausea [Unknown]
  - Tongue disorder [Unknown]
  - Gingival pain [Unknown]
